FAERS Safety Report 10480158 (Version 1)
Quarter: 2014Q3

REPORT INFORMATION
  Report Type: Spontaneous
  Country: IT (occurrence: None)
  Receive Date: 20140925
  Receipt Date: 20140925
  Transmission Date: 20150326
  Serious: Yes (Other)
  Sender: FDA-Public Use
  Company Number: FK201403754

PATIENT
  Age: 35 Year
  Sex: Female

DRUGS (3)
  1. CYTARABINE (MANUFACTURER UNKNOWN) (CYTARABINE) (CYTARABINE) [Suspect]
     Active Substance: CYTARABINE
     Indication: ACUTE LEUKAEMIA
     Dosage: 1 D
     Route: 042
     Dates: start: 20140726, end: 20140730
  2. ZAVEDOS [Suspect]
     Active Substance: IDARUBICIN
     Indication: ACUTE LEUKAEMIA
     Dosage: 1 D
     Route: 042
     Dates: start: 20140726, end: 20140728
  3. FLUDARABINE [Suspect]
     Active Substance: FLUDARABINE PHOSPHATE
     Indication: ACUTE LEUKAEMIA
     Dosage: 1 D
     Route: 042
     Dates: start: 20140726, end: 20140730

REACTIONS (2)
  - Hepatic necrosis [None]
  - Hypertransaminasaemia [None]

NARRATIVE: CASE EVENT DATE: 20140820
